FAERS Safety Report 11377065 (Version 3)
Quarter: 2015Q4

REPORT INFORMATION
  Report Type: Spontaneous
  Country: US (occurrence: US)
  Receive Date: 20150813
  Receipt Date: 20151119
  Transmission Date: 20160304
  Serious: Yes (Other)
  Sender: FDA-Public Use
  Company Number: US-LUNDBECK-DKLU2002849

PATIENT
  Sex: Female
  Weight: 79 kg

DRUGS (5)
  1. NORTHERA [Suspect]
     Active Substance: DROXIDOPA
     Indication: POSTURAL ORTHOSTATIC TACHYCARDIA SYNDROME
     Route: 048
     Dates: start: 201503
  2. NORTHERA [Suspect]
     Active Substance: DROXIDOPA
     Indication: BRADYCARDIA
     Route: 048
     Dates: start: 201502
  3. LUNESTA [Concomitant]
     Active Substance: ESZOPICLONE
     Indication: PRODUCT USED FOR UNKNOWN INDICATION
     Route: 065
  4. CHILDRENS PAIN AND FEVER [Concomitant]
     Active Substance: ACETAMINOPHEN
     Indication: PRODUCT USED FOR UNKNOWN INDICATION
     Route: 065
  5. NORTHERA [Suspect]
     Active Substance: DROXIDOPA
     Indication: HYPOTENSION
     Route: 048
     Dates: start: 20150120

REACTIONS (13)
  - Asthenia [Unknown]
  - Anxiety [Recovering/Resolving]
  - Fatigue [Recovering/Resolving]
  - Panic attack [Unknown]
  - Weight decreased [Unknown]
  - Dizziness [Recovering/Resolving]
  - Dehydration [Recovering/Resolving]
  - Protein total [Unknown]
  - Heart rate increased [Recovering/Resolving]
  - Blood pressure increased [Recovering/Resolving]
  - Memory impairment [Recovering/Resolving]
  - Palpitations [Unknown]
  - Gait disturbance [Unknown]
